FAERS Safety Report 23575185 (Version 1)
Quarter: 2024Q1

REPORT INFORMATION
  Report Type: Spontaneous
  Country: US (occurrence: None)
  Receive Date: 20240227
  Receipt Date: 20240227
  Transmission Date: 20240409
  Serious: Yes (Hospitalization)
  Sender: FDA-Public Use
  Company Number: None

PATIENT
  Sex: Male

DRUGS (6)
  1. TABLOID [Suspect]
     Active Substance: THIOGUANINE
     Dosage: OTHER FREQUENCY : TAKE 60 MG (1 AND;?
     Route: 065
  2. CYTARABINE [Suspect]
     Active Substance: CYTARABINE
  3. OLANZAPINE [Concomitant]
     Active Substance: OLANZAPINE
  4. FLUCONAZOLE [Concomitant]
     Active Substance: FLUCONAZOLE
  5. AMLODIPINE BESYLATE [Concomitant]
     Active Substance: AMLODIPINE BESYLATE
  6. PEPCID [Concomitant]
     Active Substance: FAMOTIDINE

REACTIONS (1)
  - Pyrexia [None]
